FAERS Safety Report 13806483 (Version 1)
Quarter: 2017Q3

REPORT INFORMATION
  Report Type: Report from Study
  Country: US (occurrence: US)
  Receive Date: 20170728
  Receipt Date: 20170728
  Transmission Date: 20171127
  Serious: No
  Sender: FDA-Public Use
  Company Number: US-AMGEN-USASL2017093857

PATIENT
  Sex: Female

DRUGS (1)
  1. REPATHA [Suspect]
     Active Substance: EVOLOCUMAB
     Indication: PRODUCT USED FOR UNKNOWN INDICATION
     Dosage: 140 MG, Q2WK
     Route: 065

REACTIONS (7)
  - Malaise [Unknown]
  - Hyperhidrosis [Unknown]
  - Weight increased [Unknown]
  - Flushing [Unknown]
  - Nasopharyngitis [Unknown]
  - Hyperphagia [Unknown]
  - Back pain [Unknown]
